FAERS Safety Report 22832760 (Version 3)
Quarter: 2023Q4

REPORT INFORMATION
  Report Type: Spontaneous
  Country: PT (occurrence: PT)
  Receive Date: 20230817
  Receipt Date: 20231006
  Transmission Date: 20240109
  Serious: Yes (Hospitalization, Other)
  Sender: FDA-Public Use
  Company Number: PT-009507513-2308PRT005661

PATIENT
  Age: 60 Year
  Sex: Male

DRUGS (12)
  1. PEMBROLIZUMAB [Suspect]
     Active Substance: PEMBROLIZUMAB
     Indication: Lung adenocarcinoma stage IV
     Dosage: CYCLICAL
     Dates: start: 20221103
  2. PEMBROLIZUMAB [Suspect]
     Active Substance: PEMBROLIZUMAB
     Dosage: CYCLICAL
     Dates: start: 20230126, end: 20230126
  3. CARBOPLATIN [Concomitant]
     Active Substance: CARBOPLATIN
     Indication: Lung adenocarcinoma stage IV
     Dosage: 3/3 WEEKS
     Dates: start: 20220916
  4. CARBOPLATIN [Concomitant]
     Active Substance: CARBOPLATIN
     Dosage: 3/3 WEEKS
     Dates: start: 20221006
  5. CARBOPLATIN [Concomitant]
     Active Substance: CARBOPLATIN
     Dosage: CYCLICAL
     Dates: start: 20230126
  6. PEMETREXED [Concomitant]
     Active Substance: PEMETREXED
     Indication: Lung adenocarcinoma stage IV
     Dosage: 3/3 WEEKS
     Dates: start: 20220916
  7. PEMETREXED [Concomitant]
     Active Substance: PEMETREXED
     Dosage: 3/3 WEEKS
     Dates: start: 20221006
  8. PEMETREXED [Concomitant]
     Active Substance: PEMETREXED
     Dosage: CYCLICAL
     Dates: start: 20230126
  9. LERCANIDIPINE [Concomitant]
     Active Substance: LERCANIDIPINE
     Dosage: 20 MILLIGRAM
  10. ESCITALOPRAM [Concomitant]
     Active Substance: ESCITALOPRAM OXALATE
     Dosage: 10 MILLIGRAM
  11. TRAZODONE [Concomitant]
     Active Substance: TRAZODONE HYDROCHLORIDE
     Dosage: 150 MILLIGRAM
  12. ATORVASTATIN [Concomitant]
     Active Substance: ATORVASTATIN
     Dosage: 20 MILLIGRAM

REACTIONS (5)
  - Acute kidney injury [Recovering/Resolving]
  - Tubulointerstitial nephritis [Recovered/Resolved]
  - Hyperthyroidism [Unknown]
  - Therapy partial responder [Unknown]
  - Haemangioma of liver [Unknown]

NARRATIVE: CASE EVENT DATE: 20230101
